FAERS Safety Report 23726730 (Version 1)
Quarter: 2024Q2

REPORT INFORMATION
  Report Type: Spontaneous
  Country: FR (occurrence: FR)
  Receive Date: 20240410
  Receipt Date: 20240410
  Transmission Date: 20240715
  Serious: Yes (Other)
  Sender: FDA-Public Use
  Company Number: FR-SUN PHARMACEUTICAL INDUSTRIES LTD-2024R1-430306

PATIENT
  Age: 67 Year
  Sex: Male
  Weight: 105 kg

DRUGS (11)
  1. LEVOFLOXACIN [Suspect]
     Active Substance: LEVOFLOXACIN
     Indication: Infection
     Dosage: 500 MILLIGRAM, QD
     Route: 042
     Dates: start: 20231229, end: 20240102
  2. LENALIDOMIDE [Suspect]
     Active Substance: LENALIDOMIDE
     Indication: Plasma cell myeloma
     Dosage: 10 MILLIGRAM, WEEKLY
     Route: 048
     Dates: start: 20240102
  3. CHLORPROMAZINE [Suspect]
     Active Substance: CHLORPROMAZINE
     Indication: Nausea
     Dosage: 12.5 MILLIGRAM, QD
     Route: 042
     Dates: start: 20231229, end: 20240102
  4. BORTEZOMIB [Suspect]
     Active Substance: BORTEZOMIB
     Indication: Plasma cell myeloma
     Dosage: 2.75 MILLIGRAM, WEEKLY
     Route: 058
     Dates: start: 20240102
  5. DARZALEX [Suspect]
     Active Substance: DARATUMUMAB
     Indication: Plasma cell myeloma
     Dosage: 180 MILLIGRAM, WEEKLY
     Route: 058
     Dates: start: 20240102
  6. CEFTAZIDIME [Concomitant]
     Active Substance: CEFTAZIDIME
     Indication: Infection
     Dosage: 6 GRAM, QD
     Route: 042
     Dates: start: 20231229, end: 20240102
  7. MELPHALAN [Concomitant]
     Active Substance: MELPHALAN
     Indication: Antiviral prophylaxis
     Dosage: UNK
     Route: 065
     Dates: start: 20231219, end: 20231219
  8. ETOPOSIDE [Concomitant]
     Active Substance: ETOPOSIDE
     Indication: Antiviral prophylaxis
     Dosage: UNK
     Route: 065
     Dates: start: 20231215, end: 20231218
  9. ACYCLOVIR [Concomitant]
     Active Substance: ACYCLOVIR
     Indication: Antiviral prophylaxis
     Dosage: UNK
     Route: 065
     Dates: start: 20231221, end: 20240102
  10. CARMUSTINE [Concomitant]
     Active Substance: CARMUSTINE
     Indication: Product used for unknown indication
     Dosage: UNK
     Route: 065
     Dates: start: 20231215
  11. CYTARABINE [Concomitant]
     Active Substance: CYTARABINE
     Indication: Product used for unknown indication
     Dosage: UNK
     Route: 065
     Dates: start: 20231215

REACTIONS (2)
  - Hepatic cytolysis [Recovered/Resolved]
  - Rash maculo-papular [Not Recovered/Not Resolved]

NARRATIVE: CASE EVENT DATE: 20240102
